FAERS Safety Report 6674960-2 (Version None)
Quarter: 2010Q1

REPORT INFORMATION
  Report Type: 
  Country: None (occurrence: None)
  Receive Date: 20100331
  Receipt Date: 20091110
  Transmission Date: 20100710
  Serious: Yes (Other)
  Sender: FDA-Public Use
  Company Number: 2009296492

PATIENT
  Age: 80 Year
  Sex: Female

DRUGS (2)
  1. SUTENT [Suspect]
     Dosage: ORAL
     Route: 048
  2. NORVASC [Concomitant]

REACTIONS (1)
  - BLOOD PRESSURE INCREASED [None]
